FAERS Safety Report 16073864 (Version 11)
Quarter: 2022Q3

REPORT INFORMATION
  Report Type: Report from Study
  Country: JP (occurrence: JP)
  Receive Date: 20190314
  Receipt Date: 20220725
  Transmission Date: 20221027
  Serious: Yes (Hospitalization, Other)
  Sender: FDA-Public Use
  Company Number: JP-ABBVIE-19S-087-2699901-00

PATIENT
  Age: 75 Year
  Sex: Female

DRUGS (26)
  1. CARBIDOPA\LEVODOPA [Suspect]
     Active Substance: CARBIDOPA\LEVODOPA
     Indication: Parkinson^s disease
     Dosage: MD: 6.6 ML?CD: 2.0 ML/HR X 16 HRS?ED: 2.0 ML/UNIT X 7
     Route: 050
     Dates: start: 20170907, end: 20180611
  2. CARBIDOPA\LEVODOPA [Suspect]
     Active Substance: CARBIDOPA\LEVODOPA
     Dosage: MD: 6.8 ML?CD: 2.1 ML/HR X 16 HRS?ED: 2.0 ML/UNIT X 1
     Route: 050
     Dates: start: 20180612, end: 20181011
  3. CARBIDOPA\LEVODOPA [Suspect]
     Active Substance: CARBIDOPA\LEVODOPA
     Dosage: MD: 2.0 ML?CD: 1.4 ML/HR X 16 HRS?ED: 2.0 ML/UNIT X 2
     Route: 050
     Dates: start: 20181012, end: 20181017
  4. CARBIDOPA\LEVODOPA [Suspect]
     Active Substance: CARBIDOPA\LEVODOPA
     Dosage: MD: 2.0 ML?CD: 1.8 ML/HR X 16 HRS?ED: 2.0 ML/UNIT X 2
     Route: 050
     Dates: start: 20181018, end: 20181129
  5. CARBIDOPA\LEVODOPA [Suspect]
     Active Substance: CARBIDOPA\LEVODOPA
     Dosage: MD: 2.5 ML?CD: 2.1 ML/HR X 16 HRS?ED: 1.5 ML/UNIT X 7
     Route: 050
     Dates: start: 20181130, end: 20181203
  6. CARBIDOPA\LEVODOPA [Suspect]
     Active Substance: CARBIDOPA\LEVODOPA
     Dosage: MD: 2.5 ML?CD: 2.1 ML/HR X 16 HRS?ED: 2.0 ML/UNIT X 7
     Route: 050
     Dates: start: 20181204, end: 20181211
  7. CARBIDOPA\LEVODOPA [Suspect]
     Active Substance: CARBIDOPA\LEVODOPA
     Dosage: MD: 3.0 ML?CD: 2.5 ML/HR X 16 HRS?ED: 2.0 ML/UNIT X 7
     Route: 050
     Dates: start: 20181212, end: 20190129
  8. CARBIDOPA\LEVODOPA [Suspect]
     Active Substance: CARBIDOPA\LEVODOPA
     Dosage: MD: 3.0 ML?CD: 2.6 ML/HR X 16 HRS?ED: 2.0 ML/UNIT X 7
     Route: 050
     Dates: start: 20190130, end: 20190226
  9. CARBIDOPA\LEVODOPA [Suspect]
     Active Substance: CARBIDOPA\LEVODOPA
     Dosage: MD: 3.0 ML?CD: 2.8 ML/HR X 16 HRS?ED: 2.0 ML/UNIT X 7
     Route: 050
     Dates: start: 20190227, end: 20190314
  10. CARBIDOPA\LEVODOPA [Suspect]
     Active Substance: CARBIDOPA\LEVODOPA
     Dosage: MD: 3.0 ML?CD: 3.1 ML/HR X 16 HRS?ED: 2.0 ML/UNIT X 7
     Route: 050
     Dates: start: 20190315, end: 20190421
  11. CARBIDOPA\LEVODOPA [Suspect]
     Active Substance: CARBIDOPA\LEVODOPA
     Dosage: MD: 3.0 ML?CD: 2.9 ML/HR X 16 HRS?ED: 2.0 ML/UNIT X 7
     Route: 050
     Dates: start: 20190422, end: 20190612
  12. CARBIDOPA\LEVODOPA [Suspect]
     Active Substance: CARBIDOPA\LEVODOPA
     Dosage: MD: 3.0 ML?CD: 3.0 ML/HR X 16 HRS?ED: 2.0 ML/UNIT X 7
     Route: 050
     Dates: start: 20190613, end: 20190717
  13. CARBIDOPA\LEVODOPA [Suspect]
     Active Substance: CARBIDOPA\LEVODOPA
     Dosage: MD: 3.0 ML?CD: 3.1 ML/HR X 16 HRS?ED: 2.0 ML/UNIT X 7
     Route: 050
     Dates: start: 20190718, end: 20190818
  14. CARBIDOPA\LEVODOPA [Suspect]
     Active Substance: CARBIDOPA\LEVODOPA
     Dosage: MD: 3.0 ML?CD: 3.2 ML/HR X 16 HRS?ED: 2.0 ML/UNIT X 7?STRENGTH: 20 MG/ML 5 MG/ML
     Route: 050
     Dates: start: 20190819
  15. PRAMIPEXOLE DIHYDROCHLORIDE [Concomitant]
     Active Substance: PRAMIPEXOLE DIHYDROCHLORIDE
     Indication: Parkinson^s disease
     Route: 048
     Dates: end: 20190525
  16. PRAMIPEXOLE DIHYDROCHLORIDE [Concomitant]
     Active Substance: PRAMIPEXOLE DIHYDROCHLORIDE
     Route: 048
     Dates: start: 20190526
  17. AMANTADINE HYDROCHLORIDE [Concomitant]
     Active Substance: AMANTADINE HYDROCHLORIDE
     Indication: Parkinson^s disease
     Route: 048
     Dates: end: 20180821
  18. AMANTADINE HYDROCHLORIDE [Concomitant]
     Active Substance: AMANTADINE HYDROCHLORIDE
     Route: 048
     Dates: start: 20180822
  19. AMLODIPINE BESYLATE [Concomitant]
     Active Substance: AMLODIPINE BESYLATE
     Indication: Product used for unknown indication
     Route: 048
  20. BISOPROLOL FUMARATE [Concomitant]
     Active Substance: BISOPROLOL FUMARATE
     Indication: Product used for unknown indication
     Route: 048
     Dates: start: 20181013
  21. MAGNESIUM OXIDE [Concomitant]
     Active Substance: MAGNESIUM OXIDE
     Indication: Product used for unknown indication
     Route: 048
  22. MIRABEGRON [Concomitant]
     Active Substance: MIRABEGRON
     Indication: Product used for unknown indication
     Route: 048
     Dates: end: 20190521
  23. SENNOSIDES A AND B [Concomitant]
     Active Substance: SENNOSIDES A AND B
     Indication: Product used for unknown indication
     Route: 048
  24. CARBIDOPA, LEVODOPA AND ENTACAPONE [Concomitant]
     Active Substance: CARBIDOPA\ENTACAPONE\LEVODOPA
     Indication: Parkinson^s disease
     Route: 048
     Dates: start: 20190525
  25. MIRTAZAPINE [Concomitant]
     Active Substance: MIRTAZAPINE
     Indication: Product used for unknown indication
     Dates: start: 20180913, end: 20190318
  26. REBAMIPIDE [Concomitant]
     Active Substance: REBAMIPIDE
     Indication: Product used for unknown indication

REACTIONS (14)
  - Inflammatory marker increased [Recovering/Resolving]
  - Decubitus ulcer [Recovered/Resolved]
  - Loss of consciousness [Recovered/Resolved]
  - Loss of consciousness [Unknown]
  - Parkinson^s disease [Recovering/Resolving]
  - Wrong technique in device usage process [Unknown]
  - Wheelchair user [Unknown]
  - Device breakage [Unknown]
  - Tremor [Recovered/Resolved]
  - Malaise [Unknown]
  - Fall [Unknown]
  - Tremor [Unknown]
  - On and off phenomenon [Recovered/Resolved]
  - On and off phenomenon [Unknown]

NARRATIVE: CASE EVENT DATE: 20180901
